FAERS Safety Report 4796338-9 (Version None)
Quarter: 2005Q4

REPORT INFORMATION
  Report Type: 
  Country: None (occurrence: None)
  Receive Date: 20051007
  Receipt Date: 20050927
  Transmission Date: 20060501
  Serious: Yes (Hospitalization)
  Sender: FDA-Public Use
  Company Number: 2005-03309

PATIENT
  Age: 71 Year
  Sex: Female

DRUGS (4)
  1. FERRLECIT [Suspect]
     Indication: IRON DEFICIENCY
     Dosage: 62.5 MG, EVERY 2 WEEKS, INTRAVENOUS
     Route: 042
     Dates: start: 20020401, end: 20050725
  2. L-THYROXIN   HENNING BERLIN (LEVOTHYROXINE SODIUM) [Suspect]
     Indication: THYROIDECTOMY
     Dosage: 100 UG, DAILY, ORAL
     Route: 048
     Dates: start: 20010605, end: 20050917
  3. VITAMIN B12 [Suspect]
     Indication: VITAMIN B12 DEFICIENCY
     Dosage: ONCE A MONTH, INTRAMUSCULAR
     Route: 030
     Dates: start: 19980401, end: 20040916
  4. NACOM    MSD [Concomitant]

REACTIONS (4)
  - GRAND MAL CONVULSION [None]
  - NAUSEA [None]
  - POSTICTAL STATE [None]
  - SOMNOLENCE [None]
